FAERS Safety Report 10160520 (Version 1)
Quarter: 2014Q2

REPORT INFORMATION
  Report Type: Spontaneous
  Country: US (occurrence: US)
  Receive Date: 20140508
  Receipt Date: 20140508
  Transmission Date: 20141212
  Serious: No
  Sender: FDA-Public Use
  Company Number: US-JNJFOC-20140418211

PATIENT
  Age: 4 Decade
  Sex: Female

DRUGS (1)
  1. INVEGA SUSTENNA [Suspect]
     Indication: SCHIZOPHRENIA
     Route: 030
     Dates: start: 2013, end: 2014

REACTIONS (2)
  - Blood prolactin increased [Not Recovered/Not Resolved]
  - Amenorrhoea [Not Recovered/Not Resolved]
